FAERS Safety Report 12655879 (Version 5)
Quarter: 2017Q1

REPORT INFORMATION
  Report Type: Spontaneous
  Country: US (occurrence: US)
  Receive Date: 20160816
  Receipt Date: 20170131
  Transmission Date: 20170428
  Serious: Yes (Hospitalization, Other)
  Sender: FDA-Public Use
  Company Number: US-ROCHE-1742176

PATIENT
  Sex: Male

DRUGS (7)
  1. NAFTIN [Concomitant]
     Active Substance: NAFTIFINE HYDROCHLORIDE
  2. BEXAROTENE. [Concomitant]
     Active Substance: BEXAROTENE
  3. PEGASYS [Suspect]
     Active Substance: PEGINTERFERON ALFA-2A
     Indication: MYCOSIS FUNGOIDES
     Route: 058
     Dates: start: 20120418
  4. FOLIC ACID. [Concomitant]
     Active Substance: FOLIC ACID
  5. METHOTREXATE. [Concomitant]
     Active Substance: METHOTREXATE
  6. PEGASYS [Suspect]
     Active Substance: PEGINTERFERON ALFA-2A
     Route: 058
     Dates: start: 20130418
  7. CLOBETASOL [Concomitant]
     Active Substance: CLOBETASOL

REACTIONS (8)
  - White blood cell count decreased [Unknown]
  - Injury [Unknown]
  - Drug ineffective [Unknown]
  - Abdominal discomfort [Unknown]
  - Incorrect dose administered by device [Unknown]
  - Syncope [Unknown]
  - Dizziness [Unknown]
  - Dehydration [Unknown]
